FAERS Safety Report 9963997 (Version 9)
Quarter: 2015Q2

REPORT INFORMATION
  Report Type: Spontaneous
  Country: US (occurrence: US)
  Receive Date: 20140305
  Receipt Date: 20150630
  Transmission Date: 20150821
  Serious: Yes (Other)
  Sender: FDA-Public Use
  Company Number: US-GLAXOSMITHKLINE-A1026668A

PATIENT
  Age: 35 Year
  Sex: Female

DRUGS (7)
  1. FLOLAN [Suspect]
     Active Substance: EPOPROSTENOL SODIUM
     Indication: PULMONARY ARTERIAL HYPERTENSION
     Dosage: CONCENTRATION 30,000 NG.ML VIAL STRENGTH 1.5 MG28 NG/KG/MIN, PUMP RATE 70 ML/DAY
     Route: 042
     Dates: start: 20110311
  2. FLOLAN [Suspect]
     Active Substance: EPOPROSTENOL SODIUM
     Dosage: 29 NG/KG/MIN, CONCENTRATION 30,000 NG/ML, PUMP RATE 72 ML/DAY, VIAL STRENGTH 1.5 MG), CO
     Route: 042
  3. REVATIO [Concomitant]
     Active Substance: SILDENAFIL CITRATE
  4. FLOLAN [Suspect]
     Active Substance: EPOPROSTENOL SODIUM
     Dosage: UNK
     Dates: start: 20110311
  5. COUMADIN [Concomitant]
     Active Substance: WARFARIN SODIUM
  6. FLOLAN [Suspect]
     Active Substance: EPOPROSTENOL SODIUM
     Dosage: UNK
     Dates: start: 20110311
  7. FLOLAN [Suspect]
     Active Substance: EPOPROSTENOL SODIUM
     Dosage: 30 NG/KG/MIN CONCENTRATION 30,000 NG/ML PUMP RATE 75 ML/DAY VITAL STRENGTH 1.5 MG, CO
     Route: 042

REACTIONS (8)
  - Medical device complication [Unknown]
  - Catheter site infection [Unknown]
  - Device use error [Unknown]
  - Device breakage [Unknown]
  - Catheterisation cardiac [Unknown]
  - Emergency care examination [Unknown]
  - Dermatitis contact [Unknown]
  - Flushing [Unknown]

NARRATIVE: CASE EVENT DATE: 201305
